FAERS Safety Report 9122540 (Version 2)
Quarter: 2013Q1

REPORT INFORMATION
  Report Type: Report from Study
  Country: US (occurrence: US)
  Receive Date: 20130227
  Receipt Date: 20130305
  Transmission Date: 20140127
  Serious: No
  Sender: FDA-Public Use
  Company Number: US-VERTEX PHARMACEUTICALS INC.-2013-002569

PATIENT
  Age: 48 None
  Sex: Female
  Weight: 102 kg

DRUGS (11)
  1. VX-950 (TELAPREVIR) [Suspect]
     Indication: HEPATITIS C
     Dosage: 750 MG, TID
     Route: 048
  2. RIBAPAK [Suspect]
     Indication: HEPATITIS C
     Dosage: 1200 UNK, QD
  3. PEGASYS [Suspect]
     Indication: HEPATITIS C
  4. THYROID [Concomitant]
     Dosage: 120 MG, UNK
  5. SINGULAIR [Concomitant]
     Dosage: 4 MG, UNK
  6. LEXAPRO [Concomitant]
     Dosage: 20 MG, UNK
  7. TYLENOL [Concomitant]
  8. ZOFRAN [Concomitant]
     Dosage: 8 MG, UNK
  9. FOLIC ACID [Concomitant]
  10. MULTIVITAMIN [Concomitant]
  11. LEVEMIR [Concomitant]

REACTIONS (13)
  - Weight increased [Unknown]
  - Arthralgia [Unknown]
  - Pain in extremity [Unknown]
  - Myalgia [Unknown]
  - Stomatitis [Unknown]
  - Injection site erythema [Unknown]
  - Injection site bruising [Unknown]
  - Constipation [Unknown]
  - Fatigue [Unknown]
  - Swelling face [Unknown]
  - Anal pruritus [Unknown]
  - Nausea [Unknown]
  - Diarrhoea [Unknown]
